FAERS Safety Report 5106398-3 (Version None)
Quarter: 2006Q3

REPORT INFORMATION
  Report Type: 
  Country: None (occurrence: None)
  Receive Date: 20060918
  Receipt Date: 20060912
  Transmission Date: 20061208
  Serious: Yes (Other)
  Sender: FDA-Public Use
  Company Number: US-AVENTIS-200617693US

PATIENT

DRUGS (1)
  1. LOVENOX [Suspect]
     Dosage: DOSE: UNKNOWN

REACTIONS (3)
  - CEREBROVASCULAR ACCIDENT [None]
  - CONTUSION [None]
  - ENDOCARDITIS [None]
